FAERS Safety Report 5756709-0 (Version None)
Quarter: 2008Q2

REPORT INFORMATION
  Report Type: 
  Country: None (occurrence: None)
  Receive Date: 20080529
  Receipt Date: 20080305
  Transmission Date: 20081010
  Serious: Yes (Other)
  Sender: FDA-Public Use
  Company Number: 2008US000685

PATIENT
  Sex: Male

DRUGS (2)
  1. PROTOPIC [Suspect]
     Indication: ECZEMA
     Dosage: TOPICAL
     Route: 061
     Dates: start: 20011101
  2. PIMECROLIMUS (PIMECROLIMUS) [Concomitant]

REACTIONS (1)
  - NON-HODGKIN'S LYMPHOMA STAGE IV [None]
